FAERS Safety Report 8346697-5 (Version None)
Quarter: 2012Q2

REPORT INFORMATION
  Report Type: 
  Country: None (occurrence: None)
  Receive Date: 20120509
  Receipt Date: 20120507
  Transmission Date: 20120825
  Serious: Yes (Other)
  Sender: FDA-Public Use
  Company Number: PHHY2012SE038872

PATIENT
  Age: 48 Year
  Sex: Female

DRUGS (2)
  1. ZOMETA [Suspect]
     Indication: BREAST CANCER FEMALE
     Dosage: UNK UKN, UNK
     Dates: start: 20010101, end: 20060101
  2. NOLVADEX [Concomitant]

REACTIONS (1)
  - OSTEONECROSIS [None]
